FAERS Safety Report 18205468 (Version 1)
Quarter: 2020Q3

REPORT INFORMATION
  Report Type: Spontaneous
  Country: GB (occurrence: GB)
  Receive Date: 20200827
  Receipt Date: 20200827
  Transmission Date: 20201103
  Serious: Yes (Hospitalization, Other)
  Sender: FDA-Public Use
  Company Number: GB-BRISTOL-MYERS SQUIBB COMPANY-BMS-2019-057464

PATIENT
  Age: 31 Year
  Sex: Female

DRUGS (9)
  1. CISPLATIN. [Concomitant]
     Active Substance: CISPLATIN
     Indication: LUNG ADENOCARCINOMA
     Dosage: UNK
     Route: 065
  2. CRIZOTINIB [Concomitant]
     Active Substance: CRIZOTINIB
     Indication: LUNG ADENOCARCINOMA
     Dosage: 9 CYCLICAL
     Route: 065
  3. WARFARIN SODIUM. [Interacting]
     Active Substance: WARFARIN SODIUM
     Dosage: 5 MILLIGRAM
     Route: 065
  4. VINORELBINE [Concomitant]
     Active Substance: VINORELBINE TARTRATE
     Indication: LUNG ADENOCARCINOMA
     Dosage: UNK
     Route: 065
  5. DALTEPARIN SODIUM [Interacting]
     Active Substance: DALTEPARIN SODIUM
     Dosage: 200 U/KG
     Route: 042
  6. DALTEPARIN SODIUM [Interacting]
     Active Substance: DALTEPARIN SODIUM
     Indication: DEEP VEIN THROMBOSIS
     Dosage: RECOMMENCED 96 HOURS MAINTAINED TO AN APTT OF 45?60 SECONDS FOR 72 HOURS
     Route: 042
  7. WARFARIN SODIUM. [Suspect]
     Active Substance: WARFARIN SODIUM
     Indication: DEEP VEIN THROMBOSIS
     Dosage: 10 MILLIGRAM
     Route: 065
  8. ALTEPLASE. [Concomitant]
     Active Substance: ALTEPLASE
     Indication: THROMBOLYSIS
     Dosage: UNK
     Route: 065
  9. HEPARIN [Concomitant]
     Active Substance: HEPARIN SODIUM
     Indication: DEEP VEIN THROMBOSIS
     Dosage: UNK
     Route: 065

REACTIONS (7)
  - Protein C decreased [Recovered/Resolved]
  - International normalised ratio increased [Unknown]
  - Gangrene [Unknown]
  - Thrombocytosis [Unknown]
  - Treatment failure [Recovered/Resolved]
  - Protein S decreased [Recovered/Resolved]
  - Drug interaction [Recovered/Resolved]
